FAERS Safety Report 4949024-6 (Version None)
Quarter: 2006Q1

REPORT INFORMATION
  Report Type: 
  Country: None (occurrence: None)
  Receive Date: 20060321
  Receipt Date: 20050621
  Transmission Date: 20060701
  Serious: Yes (Hospitalization)
  Sender: FDA-Public Use
  Company Number: US-GLAXOSMITHKLINE-A0563617A

PATIENT
  Age: 45 Year
  Sex: Female

DRUGS (2)
  1. ESKALITH [Suspect]
     Indication: DRUG USE FOR UNKNOWN INDICATION
     Route: 048
     Dates: start: 20010601, end: 20020601
  2. ANTIHYPERTENSIVES [Concomitant]
     Indication: HYPERTENSION

REACTIONS (11)
  - BRAIN DEATH [None]
  - CARDIAC FAILURE CONGESTIVE [None]
  - CARDIOMYOPATHY [None]
  - COMA [None]
  - DIABETES MELLITUS [None]
  - DIABETIC VASCULAR DISORDER [None]
  - MALAISE [None]
  - MYOCARDIAL INFARCTION [None]
  - RENAL FAILURE [None]
  - THERAPEUTIC AGENT TOXICITY [None]
  - VASCULITIS [None]
